FAERS Safety Report 9617346 (Version 2)
Quarter: 2013Q4

REPORT INFORMATION
  Report Type: Report from Study
  Country: NL (occurrence: NL)
  Receive Date: 20131011
  Receipt Date: 20131011
  Transmission Date: 20140711
  Serious: Yes (Death, Life-Threatening, Other)
  Sender: FDA-Public Use
  Company Number: NL-SA-CLOF-1002597

PATIENT
  Age: 63 Year
  Sex: Male
  Weight: 70 kg

DRUGS (10)
  1. CLOFARABINE [Suspect]
     Indication: ACUTE MYELOID LEUKAEMIA
     Dosage: 20 MG, UNK
     Route: 042
     Dates: start: 20130112, end: 20130116
  2. IDARUBICIN [Suspect]
     Indication: ACUTE MYELOID LEUKAEMIA
     Dosage: 24 MG, UNK
     Route: 042
     Dates: start: 20130112
  3. CYTARABINE [Suspect]
     Indication: ACUTE MYELOID LEUKAEMIA
     Dosage: 400 MG, UNK
     Route: 042
     Dates: start: 20130112
  4. PIPERACILLIN [Concomitant]
     Indication: INFECTION
     Dosage: 4000 MG, UNK
     Route: 042
     Dates: start: 20130202
  5. CIPROFLOXACIN [Concomitant]
     Indication: PROPHYLAXIS
     Dosage: 500 MG, UNK
     Route: 048
     Dates: start: 20130204
  6. FLUCONAZOLE [Concomitant]
     Indication: INFECTION
     Dosage: 200 MG, QD
     Route: 048
     Dates: start: 20130111
  7. HALOPERIDOL [Concomitant]
     Indication: RESTLESSNESS
     Dosage: 1 MG, QID
     Route: 048
     Dates: start: 20130208
  8. CLORAZEPATE DIPOTASSIUM [Concomitant]
     Indication: RESTLESSNESS
     Dosage: 10 MG, TID
     Route: 048
     Dates: start: 20130209
  9. THIAMINE [Concomitant]
     Indication: VITAMIN B1 DEFICIENCY
     Dosage: 100 MG, QD
     Route: 048
     Dates: start: 20130115
  10. TAZOBACTAM [Concomitant]
     Indication: INFECTION
     Dosage: 500 MG, TID
     Route: 042
     Dates: start: 20130202

REACTIONS (4)
  - Acute myeloid leukaemia [Fatal]
  - Systemic candida [Fatal]
  - Febrile neutropenia [Not Recovered/Not Resolved]
  - Febrile neutropenia [Recovered/Resolved]
